FAERS Safety Report 6327715-2 (Version None)
Quarter: 2009Q3

REPORT INFORMATION
  Report Type: 
  Country: None (occurrence: None)
  Receive Date: 20090817
  Receipt Date: 20090807
  Transmission Date: 20100115
  Serious: Yes (Hospitalization)
  Sender: FDA-Public Use
  Company Number: THYM-1000957

PATIENT
  Age: 65 Year
  Sex: Male
  Weight: 86 kg

DRUGS (34)
  1. THYMOGLOBULIN [Suspect]
     Indication: RENAL TRANSPLANT
     Dosage: 125 MG, INTRAVENOUS; 100 MG, INTRAVENOUS; 75 MG , INTAVENOUS; 125 MG, INTRAVENOUS
     Route: 042
     Dates: start: 20070914, end: 20070914
  2. THYMOGLOBULIN [Suspect]
     Indication: RENAL TRANSPLANT
     Dosage: 125 MG, INTRAVENOUS; 100 MG, INTRAVENOUS; 75 MG , INTAVENOUS; 125 MG, INTRAVENOUS
     Route: 042
     Dates: start: 20070915, end: 20070916
  3. THYMOGLOBULIN [Suspect]
     Indication: RENAL TRANSPLANT
     Dosage: 125 MG, INTRAVENOUS; 100 MG, INTRAVENOUS; 75 MG , INTAVENOUS; 125 MG, INTRAVENOUS
     Route: 042
     Dates: start: 20070917, end: 20070917
  4. THYMOGLOBULIN [Suspect]
     Indication: RENAL TRANSPLANT
     Dosage: 125 MG, INTRAVENOUS; 100 MG, INTRAVENOUS; 75 MG , INTAVENOUS; 125 MG, INTRAVENOUS
     Route: 042
     Dates: start: 20080813, end: 20080819
  5. SIROLIMUS (SIROLIMUS) [Suspect]
     Indication: RENAL TRANSPLANT
     Dosage: 5 MG, QD, ORAL
     Route: 048
     Dates: start: 20070914, end: 20080723
  6. BALATACEPT (BELATACEPT) [Suspect]
     Indication: RENAL TRANSPLANT
     Dosage: 445 MG, INTRAVENOUS
     Route: 042
     Dates: start: 20070914
  7. CELLCEPT [Suspect]
     Dosage: 2000MG,
     Dates: start: 20080724
  8. GLUCOTROL [Concomitant]
  9. NOVOLOG [Concomitant]
  10. ZOCOR [Concomitant]
  11. ASPIRIN [Concomitant]
  12. VALGANCICLOVIR HCL [Concomitant]
  13. COLACE (DOCUSATE SODIUM) [Concomitant]
  14. PROCRIT [Concomitant]
  15. INSULIN (INSULIN) [Concomitant]
  16. MYCOSTATIN [Concomitant]
  17. PERCOCET [Concomitant]
  18. BACTRIM DS [Concomitant]
  19. NIASPAN [Concomitant]
  20. TENORMIN [Concomitant]
  21. FER-IN-SOL (FERROUS SULFATE) [Concomitant]
  22. REGLAN [Concomitant]
  23. NIACIN [Concomitant]
  24. PHENERGAN (PROMETHAZINE) [Concomitant]
  25. ZOLOFT [Concomitant]
  26. LANTUS [Concomitant]
  27. COMBIVENT (IPRATROPIUM BROMIDE) [Concomitant]
  28. OMEPRAZOLE [Concomitant]
  29. COUMADIN [Concomitant]
  30. CARDURA [Concomitant]
  31. CATAPRES [Concomitant]
  32. LASIX [Concomitant]
  33. APRESOLINE [Concomitant]
  34. IMDUR [Concomitant]

REACTIONS (8)
  - CANDIDIASIS [None]
  - CENTRAL LINE INFECTION [None]
  - DEEP VEIN THROMBOSIS [None]
  - ENTEROCOCCAL INFECTION [None]
  - ESCHERICHIA URINARY TRACT INFECTION [None]
  - MEDICAL DEVICE COMPLICATION [None]
  - RENAL FAILURE ACUTE [None]
  - URINARY TRACT INFECTION ENTEROCOCCAL [None]
